FAERS Safety Report 25358555 (Version 1)
Quarter: 2025Q2

REPORT INFORMATION
  Report Type: Spontaneous
  Country: US (occurrence: US)
  Receive Date: 20250526
  Receipt Date: 20250526
  Transmission Date: 20250717
  Serious: No
  Sender: GLENMARK
  Company Number: US-GLENMARK PHARMACEUTICALS-2024GMK094432

PATIENT

DRUGS (1)
  1. MOEXIPRIL HYDROCHLORIDE [Suspect]
     Active Substance: MOEXIPRIL HYDROCHLORIDE
     Indication: Blood pressure management
     Route: 065

REACTIONS (2)
  - Product use issue [Unknown]
  - Product availability issue [Unknown]
